FAERS Safety Report 22088717 (Version 1)
Quarter: 2023Q1

REPORT INFORMATION
  Report Type: Spontaneous
  Country: US (occurrence: None)
  Receive Date: 20230310
  Receipt Date: 20230310
  Transmission Date: 20230418
  Serious: No
  Sender: FDA-Public Use
  Company Number: None

PATIENT
  Age: 94 Year
  Sex: Female

DRUGS (1)
  1. AMBRISENTAN [Suspect]
     Active Substance: AMBRISENTAN
     Indication: Pulmonary arterial hypertension
     Dosage: FREQUENCY : DAILY;?
     Route: 048

REACTIONS (10)
  - Dyspnoea [None]
  - Depression [None]
  - Macular degeneration [None]
  - Decreased interest [None]
  - Pulmonary oedema [None]
  - Chest pain [None]
  - Vomiting [None]
  - Insomnia [None]
  - Gait disturbance [None]
  - Restlessness [None]

NARRATIVE: CASE EVENT DATE: 20230310
